FAERS Safety Report 6234500-9 (Version None)
Quarter: 2009Q2

REPORT INFORMATION
  Report Type: 
  Country: None (occurrence: None)
  Receive Date: 20090618
  Receipt Date: 20081013
  Transmission Date: 20091009
  Serious: No
  Sender: FDA-Public Use
  Company Number: US-BRISTOL-MYERS SQUIBB COMPANY-14368278

PATIENT

DRUGS (1)
  1. CARBIDOPA + LEVODOPA TABS 25MG/250MG [Suspect]
     Dosage: 1 DOSAGE FORM=25/250MG;PACKAGED 100 BOT

REACTIONS (1)
  - THERAPEUTIC RESPONSE DECREASED [None]
